FAERS Safety Report 4500878-7 (Version None)
Quarter: 2004Q4

REPORT INFORMATION
  Report Type: 
  Country: None (occurrence: None)
  Receive Date: 20041109
  Receipt Date: 20041026
  Transmission Date: 20050328
  Serious: Yes (Hospitalization)
  Sender: FDA-Public Use
  Company Number: 2004241303US

PATIENT
  Age: 43 Year
  Sex: Female

DRUGS (7)
  1. CAMPTOSAR [Suspect]
     Indication: GLIOBLASTOMA MULTIFORME
     Dosage: 183 MG, CYCLIC, IV
     Route: 042
     Dates: start: 20041013
  2. COMPARATOR-THALIDOMIDE (THALDOMIDE) CAPSULE [Suspect]
     Indication: GLIOBLASTOMA MULTIFORME
     Dosage: 400 MG, CYCLIC, ORAL
     Route: 048
     Dates: start: 20041013
  3. PAXIL [Concomitant]
  4. ALBUTEROL [Concomitant]
  5. SEREVENT [Concomitant]
  6. DECADRON [Concomitant]
  7. COUMADIN [Concomitant]

REACTIONS (4)
  - LUNG INFILTRATION [None]
  - NEUTROPHIL COUNT DECREASED [None]
  - PNEUMONIA [None]
  - PNEUMONITIS [None]
